FAERS Safety Report 20642134 (Version 1)
Quarter: 2022Q1

REPORT INFORMATION
  Report Type: Spontaneous
  Country: CN (occurrence: CN)
  Receive Date: 20220328
  Receipt Date: 20220328
  Transmission Date: 20220423
  Serious: Yes (Hospitalization)
  Sender: FDA-Public Use
  Company Number: CN-SA-2022SA092598

PATIENT
  Age: 46 Year
  Sex: Male

DRUGS (24)
  1. CLOZAPINE [Interacting]
     Active Substance: CLOZAPINE
     Indication: Schizophrenia
     Dosage: 500 MG, QD (GRADUALLY INCREASED TO 6-14 TABLETS)
     Route: 048
     Dates: start: 2009
  2. CLOZAPINE [Interacting]
     Active Substance: CLOZAPINE
     Dosage: 800 MG, QD (INCREASED TO 6-26 TABLETS )
     Route: 048
     Dates: start: 2012
  3. CLOZAPINE [Interacting]
     Active Substance: CLOZAPINE
     Dosage: 1275 MG, QD (TOOK  6-45 TABLETS )
     Route: 048
     Dates: start: 202104, end: 20210525
  4. CLOZAPINE [Interacting]
     Active Substance: CLOZAPINE
     Dosage: REDUCED TO 34 TABLETS (25 MG/TABLET), QD
     Route: 048
     Dates: start: 20210526, end: 20210527
  5. CLOZAPINE [Interacting]
     Active Substance: CLOZAPINE
     Dosage: 4-27 TABLETS, QD
     Route: 048
     Dates: start: 20210528, end: 20210530
  6. CLOZAPINE [Interacting]
     Active Substance: CLOZAPINE
     Dosage: 4-24 TABLETS, QD
     Route: 048
     Dates: start: 20210531, end: 20210602
  7. CLOZAPINE [Interacting]
     Active Substance: CLOZAPINE
     Dosage: 4-20 TABLETS, QD
     Route: 048
     Dates: start: 20210603, end: 20210605
  8. CLOZAPINE [Interacting]
     Active Substance: CLOZAPINE
     Dosage: 4-17 TABLETS, QD
     Route: 048
     Dates: start: 20210606, end: 20210608
  9. CLOZAPINE [Interacting]
     Active Substance: CLOZAPINE
     Dosage: 4-14 TABLETS, QD
     Route: 048
     Dates: start: 20210609, end: 20210611
  10. CLOZAPINE [Interacting]
     Active Substance: CLOZAPINE
     Dosage: 4-12 TABLETS, QD
     Route: 048
     Dates: start: 20210612, end: 20210614
  11. CLOZAPINE [Interacting]
     Active Substance: CLOZAPINE
     Dosage: 4-14 TABLETS, QD
     Route: 048
     Dates: start: 20210615, end: 20210622
  12. CLOZAPINE [Interacting]
     Active Substance: CLOZAPINE
     Dosage: 450 MG, QD (6- 12 TABLETS)
     Route: 048
     Dates: start: 20210623
  13. CLONAZEPAM [Interacting]
     Active Substance: CLONAZEPAM
     Indication: Insomnia
     Dosage: 8 MG, HS (GRADUALLY INCREASED FROM 1 TABLET TO 4 TABLETS )
     Route: 048
     Dates: start: 2012
  14. CLONAZEPAM [Interacting]
     Active Substance: CLONAZEPAM
     Dosage: 26 MG, HS (INCREASED FROM 4 TABLETS TO 13 TABLETS )
     Route: 048
     Dates: start: 202104, end: 20210525
  15. CLONAZEPAM [Interacting]
     Active Substance: CLONAZEPAM
     Dosage: 10 TABLETS (2 MG/TABLET), HS
     Route: 048
     Dates: start: 20210526, end: 20210527
  16. CLONAZEPAM [Interacting]
     Active Substance: CLONAZEPAM
     Dosage: 9 TABLETS, HS
     Route: 048
     Dates: start: 20210528, end: 20210530
  17. CLONAZEPAM [Interacting]
     Active Substance: CLONAZEPAM
     Dosage: 8 TABLETS , HS
     Route: 048
     Dates: start: 20210531, end: 20210602
  18. CLONAZEPAM [Interacting]
     Active Substance: CLONAZEPAM
     Dosage: 6 TABLETS , HS
     Route: 048
     Dates: start: 20210603, end: 20210605
  19. CLONAZEPAM [Interacting]
     Active Substance: CLONAZEPAM
     Dosage: 5 TABLETS , HS
     Route: 048
     Dates: start: 20210606, end: 20210608
  20. CLONAZEPAM [Interacting]
     Active Substance: CLONAZEPAM
     Dosage: 4 TABLETS , HS
     Route: 048
     Dates: start: 20210609, end: 20210611
  21. CLONAZEPAM [Interacting]
     Active Substance: CLONAZEPAM
     Dosage: 3 TABLETS , HS
     Route: 048
     Dates: start: 20210612, end: 20210614
  22. CLONAZEPAM [Interacting]
     Active Substance: CLONAZEPAM
     Dosage: 2 TABLETS , HS
     Route: 048
     Dates: start: 20210615, end: 20210622
  23. CLONAZEPAM [Interacting]
     Active Substance: CLONAZEPAM
     Dosage: 2 MG, HS (1 TABLET)
     Route: 048
     Dates: start: 20210623
  24. RIFAMPIN [Interacting]
     Active Substance: RIFAMPIN
     Indication: Tuberculosis
     Dosage: UNK
     Dates: start: 2012, end: 202104

REACTIONS (10)
  - Tremor [Unknown]
  - Intentional product misuse [Unknown]
  - Hyperhidrosis [Unknown]
  - Drug withdrawal syndrome [Unknown]
  - Palpitations [Unknown]
  - Suspiciousness [Recovered/Resolved]
  - Anxiety [Recovered/Resolved]
  - Insomnia [Unknown]
  - Poor quality sleep [Unknown]
  - Drug interaction [Unknown]

NARRATIVE: CASE EVENT DATE: 20120101
